FAERS Safety Report 18847193 (Version 4)
Quarter: 2021Q3

REPORT INFORMATION
  Report Type: Spontaneous
  Country: US (occurrence: US)
  Receive Date: 20210204
  Receipt Date: 20210702
  Transmission Date: 20211014
  Serious: No
  Sender: FDA-Public Use
  Company Number: US-PFIZER INC-2021098664

PATIENT
  Age: 62 Year
  Sex: Female

DRUGS (4)
  1. IBRANCE [Suspect]
     Active Substance: PALBOCICLIB
     Dosage: 125 MG
     Dates: start: 20210119
  2. IBRANCE [Suspect]
     Active Substance: PALBOCICLIB
     Dosage: 125 MG
     Dates: start: 20201220
  3. IBRANCE [Suspect]
     Active Substance: PALBOCICLIB
     Dosage: UNK (LOWER DOSE)
     Dates: start: 202102
  4. IBRANCE [Suspect]
     Active Substance: PALBOCICLIB
     Dosage: 125 MG
     Dates: start: 20201224, end: 20201231

REACTIONS (11)
  - Dyspnoea [Unknown]
  - Upper respiratory tract infection [Unknown]
  - Muscle strain [Unknown]
  - Platelet count decreased [Unknown]
  - Hepatic enzyme abnormal [Unknown]
  - Flatulence [Unknown]
  - Nausea [Unknown]
  - White blood cell count decreased [Unknown]
  - Wheezing [Unknown]
  - Diarrhoea [Unknown]
  - Pyrexia [Unknown]

NARRATIVE: CASE EVENT DATE: 20210108
